FAERS Safety Report 24565339 (Version 1)
Quarter: 2024Q4

REPORT INFORMATION
  Report Type: Spontaneous
  Country: US (occurrence: None)
  Receive Date: 20241029
  Receipt Date: 20241029
  Transmission Date: 20250115
  Serious: No
  Sender: Public
  Company Number: None

PATIENT
  Age: 31 Year
  Sex: Female

DRUGS (1)
  1. ZURZUVAE [Suspect]
     Active Substance: ZURANOLONE
     Indication: Perinatal depression
     Dosage: FREQUENCY : AT BEDTIME;?
     Route: 048

REACTIONS (9)
  - Feeling abnormal [None]
  - Illness [None]
  - Dizziness [None]
  - Eye disorder [None]
  - Heart rate increased [None]
  - Feeling abnormal [None]
  - Lethargy [None]
  - Mania [None]
  - Anger [None]

NARRATIVE: CASE EVENT DATE: 20241017
